FAERS Safety Report 4442996-8 (Version None)
Quarter: 2004Q3

REPORT INFORMATION
  Report Type: 
  Country: None (occurrence: None)
  Receive Date: 20040903
  Receipt Date: 20040629
  Transmission Date: 20050211
  Serious: Yes (Other)
  Sender: FDA-Public Use
  Company Number: 2004UW13535

PATIENT
  Age: 61 Year
  Sex: Female

DRUGS (5)
  1. CRESTOR [Suspect]
     Dosage: 10 MG HS PO
     Route: 048
  2. SYNTHROID [Concomitant]
  3. PREMARIN [Concomitant]
  4. ZANTAC [Concomitant]
  5. NAPROSYN [Concomitant]

REACTIONS (1)
  - SOMNOLENCE [None]
